FAERS Safety Report 6197307-7 (Version None)
Quarter: 2009Q2

REPORT INFORMATION
  Report Type: 
  Country: None (occurrence: None)
  Receive Date: 20090521
  Receipt Date: 20090518
  Transmission Date: 20091009
  Serious: Yes (Other)
  Sender: FDA-Public Use
  Company Number: PH-JNJFOC-20090504126

PATIENT
  Sex: Male

DRUGS (2)
  1. TOPAMAX [Suspect]
     Indication: CONVULSION
     Route: 048
  2. VALPROIC ACID [Suspect]
     Indication: CONVULSION
     Route: 065

REACTIONS (1)
  - EXTRAPYRAMIDAL DISORDER [None]
